FAERS Safety Report 6956409-5 (Version None)
Quarter: 2010Q3

REPORT INFORMATION
  Report Type: 
  Country: None (occurrence: None)
  Receive Date: 20100830
  Receipt Date: 20100819
  Transmission Date: 20110219
  Serious: Yes (Hospitalization)
  Sender: FDA-Public Use
  Company Number: B0664897A

PATIENT
  Sex: Female

DRUGS (9)
  1. LAMICTAL [Suspect]
     Indication: EPILEPSY
     Dosage: 12MG PER DAY
     Route: 048
     Dates: start: 20100621, end: 20100707
  2. MODACIN [Suspect]
     Indication: PNEUMONIA
     Dosage: 2400MG PER DAY
     Route: 042
     Dates: start: 20100627, end: 20100704
  3. DALACIN [Suspect]
     Indication: PNEUMONIA
     Dosage: 720MG PER DAY
     Route: 065
     Dates: start: 20100701, end: 20100707
  4. TEGRETOL [Concomitant]
     Indication: EPILEPSY
     Dosage: 280MG PER DAY
     Route: 048
     Dates: start: 19980101, end: 20100706
  5. PHENYTOIN SODIUM [Concomitant]
     Indication: EPILEPSY
     Dosage: 120MG PER DAY
     Route: 065
     Dates: start: 20091201
  6. PHENOBARBITAL TAB [Concomitant]
     Indication: EPILEPSY
     Dosage: 70MG PER DAY
     Route: 065
     Dates: start: 19980101
  7. MYSTAN [Concomitant]
     Indication: EPILEPSY
     Dosage: 4MG PER DAY
     Route: 048
  8. FIRSTCIN [Concomitant]
     Dosage: 1200MG PER DAY
     Route: 042
     Dates: start: 20100705
  9. MINOCYCLINE HCL [Concomitant]
     Dosage: 70MG PER DAY
     Route: 065
     Dates: start: 20100707

REACTIONS (9)
  - C-REACTIVE PROTEIN INCREASED [None]
  - CONJUNCTIVAL HYPERAEMIA [None]
  - ERYTHEMA [None]
  - PNEUMONIA [None]
  - PYREXIA [None]
  - RASH [None]
  - RASH ERYTHEMATOUS [None]
  - STEVENS-JOHNSON SYNDROME [None]
  - STOMATITIS [None]
